FAERS Safety Report 6744456-8 (Version None)
Quarter: 2010Q2

REPORT INFORMATION
  Report Type: 
  Country: None (occurrence: None)
  Receive Date: 20100527
  Receipt Date: 20100525
  Transmission Date: 20101027
  Serious: Yes (Death)
  Sender: FDA-Public Use
  Company Number: US-B.I. PHARMACEUTICALS,INC./RIDGEFIELD-2010-BP-05914BP

PATIENT
  Sex: Male

DRUGS (11)
  1. COMBIVENT [Suspect]
     Dosage: 18MCG/103MCG;2 PUFFS QID, PRN
     Route: 055
  2. FUROSEMIDE [Concomitant]
  3. PREDNISONE TAB [Concomitant]
  4. K-DUR [Concomitant]
  5. GABAPENTIN [Concomitant]
  6. METOPROLOL [Concomitant]
  7. SPIRIVA [Concomitant]
  8. ADVAIR DISKUS 100/50 [Concomitant]
  9. ASPIRIN [Concomitant]
  10. ALBUTEROL [Concomitant]
  11. NITROGLYCERIN [Concomitant]

REACTIONS (1)
  - DEATH [None]
